FAERS Safety Report 9487203 (Version 1)
Quarter: 2013Q3

REPORT INFORMATION
  Report Type: Spontaneous
  Country: GB (occurrence: GB)
  Receive Date: 20130829
  Receipt Date: 20130829
  Transmission Date: 20140515
  Serious: Yes (Life-Threatening, Hospitalization)
  Sender: FDA-Public Use
  Company Number: GB-WATSON-2013-15091

PATIENT
  Age: 59 Year
  Sex: Female

DRUGS (2)
  1. SIMVASTATIN (UNKNOWN) [Suspect]
     Indication: PRODUCT USED FOR UNKNOWN INDICATION
     Dosage: 40 MG, DAILY
     Route: 048
     Dates: end: 20130731
  2. FUCIDIN [Suspect]
     Indication: OSTEOMYELITIS
     Dosage: 500 MG, TID FOR 8 DAYS
     Route: 048
     Dates: start: 20130723

REACTIONS (3)
  - Rhabdomyolysis [Recovering/Resolving]
  - Muscular weakness [Recovering/Resolving]
  - Paralysis [Recovering/Resolving]
